FAERS Safety Report 20068469 (Version 1)
Quarter: 2021Q4

REPORT INFORMATION
  Report Type: Spontaneous
  Country: US (occurrence: US)
  Receive Date: 20211115
  Receipt Date: 20211115
  Transmission Date: 20220303
  Serious: No
  Sender: FDA-Public Use
  Company Number: US-JNJFOC-20211040283

PATIENT
  Sex: Male

DRUGS (1)
  1. ERLEADA [Suspect]
     Active Substance: APALUTAMIDE
     Indication: Product used for unknown indication
     Dosage: 60 MG TAKE 4 TABLETS BY MOUTH ONCE A DAY
     Route: 048
     Dates: start: 20200904

REACTIONS (2)
  - Neoplasm [Unknown]
  - Product dose omission issue [Unknown]
